FAERS Safety Report 23874299 (Version 3)
Quarter: 2024Q2

REPORT INFORMATION
  Report Type: Spontaneous
  Country: FR (occurrence: FR)
  Receive Date: 20240520
  Receipt Date: 20240531
  Transmission Date: 20240716
  Serious: Yes (Other)
  Sender: FDA-Public Use
  Company Number: None

PATIENT
  Age: 14 Year
  Sex: Female
  Weight: 60 kg

DRUGS (3)
  1. ETHINYL ESTRADIOL\LEVONORGESTREL [Suspect]
     Active Substance: ETHINYL ESTRADIOL\LEVONORGESTREL
     Indication: Menometrorrhagia
     Dosage: 1 DF, 1X/DAY
     Route: 048
     Dates: start: 20220919, end: 20230201
  2. ASCOFER [FERROUS ASCORBATE] [Concomitant]
     Indication: Menometrorrhagia
     Dosage: 2 DF, 1X/DAY
     Route: 048
     Dates: start: 20230225
  3. SODIUM FEREDETATE [Concomitant]
     Active Substance: SODIUM FEREDETATE
     Indication: Menometrorrhagia
     Dosage: 2 DF, 1X/DAY
     Route: 048
     Dates: start: 20220729, end: 20230224

REACTIONS (6)
  - Amenorrhoea [Recovered/Resolved]
  - Increased appetite [Recovered/Resolved]
  - Weight increased [Recovering/Resolving]
  - Pain [Recovered/Resolved]
  - Depression [Recovered/Resolved]
  - Off label use [Unknown]

NARRATIVE: CASE EVENT DATE: 20220101
